FAERS Safety Report 10079180 (Version 1)
Quarter: 2014Q2

REPORT INFORMATION
  Report Type: Spontaneous
  Country: BR (occurrence: BR)
  Receive Date: 20140415
  Receipt Date: 20140415
  Transmission Date: 20141212
  Serious: Yes (Other)
  Sender: FDA-Public Use
  Company Number: BR-PFIZER INC-2014099631

PATIENT
  Age: 60 Year
  Sex: Female
  Weight: 79 kg

DRUGS (4)
  1. XALATAN [Suspect]
     Dosage: 1 DROP IN EACH EYE (3 UG), 1X/DAY
     Route: 047
     Dates: start: 20130130
  2. COSOPT [Concomitant]
     Dosage: IN THE RIGHT VISION
     Route: 047
     Dates: start: 201403
  3. LACRIMA PLUS [Concomitant]
     Dosage: IN BOTH EYES
     Route: 047
     Dates: start: 201403
  4. PREDFORT [Concomitant]
     Dosage: ONLY IN THE LEFT EYE
     Route: 047

REACTIONS (1)
  - Glaucoma [Unknown]
